FAERS Safety Report 5907764-6 (Version None)
Quarter: 2008Q3

REPORT INFORMATION
  Report Type: 
  Country: None (occurrence: None)
  Receive Date: 20080929
  Receipt Date: 20080915
  Transmission Date: 20090109
  Serious: Yes (Death)
  Sender: FDA-Public Use
  Company Number: 1-16677111

PATIENT
  Age: 20 Year
  Sex: Male

DRUGS (3)
  1. SODIUM PHENYLBUTYRATE [Suspect]
     Indication: HYPERAMMONAEMIA
     Dosage: 200-250 MG/KG DAILY
  2. UCEPHAN (SODIUM BENZOATE; SODIUM PHENYLACETATE) [Concomitant]
  3. SODIUM PHENYLBUTYRATE [Concomitant]

REACTIONS (6)
  - CARDIOMEGALY [None]
  - CARNITINE DEFICIENCY [None]
  - DRUG WITHDRAWAL SYNDROME [None]
  - HEPATIC STEATOSIS [None]
  - HYPOGLYCAEMIA [None]
  - TREATMENT NONCOMPLIANCE [None]
